FAERS Safety Report 8782212 (Version 2)
Quarter: 2012Q4

REPORT INFORMATION
  Report Type: 
  Country: US (occurrence: US)
  Receive Date: 20120913
  Receipt Date: 20121126
  Transmission Date: 20130627
  Serious: No
  Sender: FDA-Public Use
  Company Number: US-VERTEX PHARMACEUTICAL INC.-2012-020024

PATIENT
  Sex: Female

DRUGS (4)
  1. VX-950 (TELAPREVIR) [Suspect]
     Indication: HEPATITIS C
     Dosage: 750 mg, tid
     Route: 048
     Dates: start: 2012
  2. RIBASPHERE [Concomitant]
     Indication: HEPATITIS C
     Dosage: 1000 mg, bid
     Route: 048
     Dates: start: 2012
  3. RIBASPHERE [Concomitant]
     Dosage: 1000 mg, qd
     Route: 048
  4. PEGASYS [Concomitant]
     Indication: HEPATITIS C
     Dosage: 180 ?g, UNK
     Route: 058
     Dates: start: 2012

REACTIONS (3)
  - Ascites [Unknown]
  - Haemoglobin decreased [Unknown]
  - Haematocrit decreased [Unknown]
